FAERS Safety Report 8495236-7 (Version None)
Quarter: 2012Q3

REPORT INFORMATION
  Report Type: 
  Country: None (occurrence: None)
  Receive Date: 20120709
  Receipt Date: 20120705
  Transmission Date: 20120928
  Serious: Yes (Other)
  Sender: FDA-Public Use
  Company Number: US-B.I. PHARMACEUTICALS,INC./RIDGEFIELD-2012-BP-15069BP

PATIENT
  Sex: Male

DRUGS (1)
  1. SPIRIVA [Suspect]

REACTIONS (4)
  - LUNG DISORDER [None]
  - MYOCARDIAL INFARCTION [None]
  - POLLAKIURIA [None]
  - HYPERTENSION [None]
